FAERS Safety Report 5542390-2 (Version None)
Quarter: 2007Q4

REPORT INFORMATION
  Report Type: 
  Country: None (occurrence: None)
  Receive Date: 20071210
  Receipt Date: 20071130
  Transmission Date: 20080405
  Serious: Yes (Other)
  Sender: FDA-Public Use
  Company Number: GB-GILEAD-2007-0014344

PATIENT
  Sex: Male

DRUGS (1)
  1. VIREAD [Suspect]

REACTIONS (2)
  - FANCONI SYNDROME ACQUIRED [None]
  - LIVER DISORDER [None]
